FAERS Safety Report 4506078-9 (Version None)
Quarter: 2004Q4

REPORT INFORMATION
  Report Type: 
  Country: None (occurrence: None)
  Receive Date: 20041025
  Receipt Date: 20040803
  Transmission Date: 20050328
  Serious: Yes (Death)
  Sender: FDA-Public Use
  Company Number: US-JNJFOC-20040501643

PATIENT
  Age: 78 Year
  Sex: Female
  Weight: 53.5244 kg

DRUGS (30)
  1. REMICADE [Suspect]
     Indication: RHEUMATOID ARTHRITIS
     Dosage: SEE IMAGE
     Route: 042
     Dates: start: 20040114, end: 20040310
  2. REMICADE [Suspect]
     Indication: RHEUMATOID ARTHRITIS
     Dosage: SEE IMAGE
     Route: 042
     Dates: start: 20030422
  3. REMICADE [Suspect]
  4. PREDNISONE [Concomitant]
  5. MEDROL [Concomitant]
  6. ADALAT [Concomitant]
  7. TRAZODONE HCL [Concomitant]
  8. VITAMIN B 12 (CYANOCOBALAMIN) INJECTION [Concomitant]
  9. FIORICET [Concomitant]
  10. AMITRIPYTLINE (AMITRIPTYLINE) [Concomitant]
  11. NEURONTIN [Concomitant]
  12. LORAZEPAM [Concomitant]
  13. HYDROCODONE (HYDROCODONE) [Concomitant]
  14. SOMA [Concomitant]
  15. ASPIRIN [Concomitant]
  16. FOLIC ACID [Concomitant]
  17. CALCIUM (CALCIUM) [Concomitant]
  18. POTASSIUM (POTASSIUM) [Concomitant]
  19. NIACIN [Concomitant]
  20. NEXIUM [Concomitant]
  21. MIACALCIN (CALCITONIN, SALMON) SPRAY [Concomitant]
  22. VITAMIN E [Concomitant]
  23. GENTEAL (HYPROMELLOSE) DROPS [Concomitant]
  24. MECLIZINE [Concomitant]
  25. PHENERGAN [Concomitant]
  26. ESTRATEST [Concomitant]
  27. FERGON (FERROUS GLUCONATE) [Concomitant]
  28. ERYTHROMYCIN [Concomitant]
  29. QUIXIN (LEVOFLOXACIN) [Concomitant]
  30. IMIPRAMINE [Concomitant]

REACTIONS (1)
  - SEPSIS [None]
